FAERS Safety Report 6779481-4 (Version None)
Quarter: 2010Q2

REPORT INFORMATION
  Report Type: 
  Country: None (occurrence: None)
  Receive Date: 20100618
  Receipt Date: 20100610
  Transmission Date: 20101027
  Serious: Yes (Other)
  Sender: FDA-Public Use
  Company Number: GXKR2010US06423

PATIENT
  Age: 52 Year
  Sex: Female

DRUGS (11)
  1. TACROLIMUS (NGX) [Suspect]
     Indication: IMMUNOSUPPRESSION
  2. MYCOPHENOLATE MOFETIL [Suspect]
     Indication: IMMUNOSUPPRESSION
     Dosage: UNKOWN
  3. BASILIXIMAB [Suspect]
     Indication: IMMUNOSUPPRESSION
  4. SIROLIMUS [Suspect]
     Indication: IMMUNOSUPPRESSION
  5. STEROIDS NOS [Suspect]
     Indication: IMMUNOSUPPRESSION
     Dosage: UNK
  6. VALGANCICLOVIR [Concomitant]
  7. SULFAMETHOXAZOLE AND TRIMETHOPRIM [Concomitant]
  8. METOPROLOL TARTRATE [Concomitant]
  9. HYDRALAZINE HCL [Concomitant]
  10. FAMOTIDINE [Concomitant]
  11. SIMVASTATIN [Concomitant]

REACTIONS (2)
  - BONE MARROW OEDEMA SYNDROME [None]
  - PAIN [None]
